FAERS Safety Report 8420820-6 (Version None)
Quarter: 2012Q2

REPORT INFORMATION
  Report Type: 
  Country: None (occurrence: None)
  Receive Date: 20120608
  Receipt Date: 20120606
  Transmission Date: 20120825
  Serious: No
  Sender: FDA-Public Use
  Company Number: US-PFIZER INC-2012132730

PATIENT
  Sex: Female
  Weight: 113 kg

DRUGS (4)
  1. NICOTROL [Suspect]
     Dosage: 4 CARTRIDGES OF 4 MG
     Route: 055
     Dates: start: 20120506, end: 20120507
  2. NICOTROL [Suspect]
     Indication: SMOKING CESSATION THERAPY
     Dosage: 3 CARTRIDGES OF 4 MG
     Route: 055
     Dates: start: 20120505, end: 20120505
  3. NICOTROL [Suspect]
     Dosage: 3 CARTRIDGES OF 4 MG
     Route: 055
     Dates: start: 20120508, end: 20120508
  4. WARFARIN [Suspect]
     Indication: ANTICOAGULANT THERAPY
     Dosage: UNK

REACTIONS (3)
  - TONGUE DISORDER [None]
  - GINGIVAL RECESSION [None]
  - STOMATITIS [None]
